FAERS Safety Report 15089405 (Version 1)
Quarter: 2018Q2

REPORT INFORMATION
  Report Type: Spontaneous
  Country: US (occurrence: US)
  Receive Date: 20180629
  Receipt Date: 20180629
  Transmission Date: 20180711
  Serious: No
  Sender: FDA-Public Use
  Company Number: US-ACCORD-064701

PATIENT
  Age: 78 Year
  Sex: Female
  Weight: 68.04 kg

DRUGS (1)
  1. MYCOPHENOLATE ACCORD [Suspect]
     Active Substance: MYCOPHENOLIC ACID
     Indication: SYSTEMIC LUPUS ERYTHEMATOSUS
     Route: 048
     Dates: start: 20180203, end: 20180302

REACTIONS (4)
  - Product substitution issue [Unknown]
  - Blood pressure fluctuation [Unknown]
  - Off label use [Unknown]
  - Rash [Unknown]

NARRATIVE: CASE EVENT DATE: 20180217
